FAERS Safety Report 5337939-9 (Version None)
Quarter: 2007Q2

REPORT INFORMATION
  Report Type: 
  Country: None (occurrence: None)
  Receive Date: 20070327
  Receipt Date: 20061201
  Transmission Date: 20071010
  Serious: No
  Sender: FDA-Public Use
  Company Number: 225852

PATIENT
  Age: 59 Year
  Sex: Female
  Weight: 74.8 kg

DRUGS (1)
  1. AVASTIN [Suspect]
     Indication: BREAST CANCER
     Dosage: 400 MG, Q2W, INTRAVENOUS
     Route: 042
     Dates: start: 20051107

REACTIONS (1)
  - MIGRAINE [None]
